FAERS Safety Report 14999069 (Version 1)
Quarter: 2018Q2

REPORT INFORMATION
  Report Type: Spontaneous
  Country: US (occurrence: US)
  Receive Date: 20180612
  Receipt Date: 20180612
  Transmission Date: 20180711
  Serious: Yes (Life-Threatening, Other)
  Sender: FDA-Public Use
  Company Number: US-TESARO, INC-US-2018TSO02883

PATIENT
  Sex: Female

DRUGS (1)
  1. ZEJULA [Suspect]
     Active Substance: NIRAPARIB
     Indication: OVARIAN CANCER RECURRENT
     Dosage: UNK, BID
     Route: 065
     Dates: start: 2018

REACTIONS (8)
  - Deep vein thrombosis [Unknown]
  - Blood pressure increased [Unknown]
  - General physical health deterioration [Unknown]
  - Inappropriate schedule of drug administration [Unknown]
  - Cerebrovascular accident [Unknown]
  - Adverse drug reaction [Unknown]
  - Fatigue [Unknown]
  - Heart rate increased [Unknown]
